FAERS Safety Report 23576497 (Version 2)
Quarter: 2024Q1

REPORT INFORMATION
  Report Type: Spontaneous
  Country: JP (occurrence: JP)
  Receive Date: 20240228
  Receipt Date: 20240315
  Transmission Date: 20240409
  Serious: Yes (Other)
  Sender: FDA-Public Use
  Company Number: JP-TEVA-VS-3163102

PATIENT
  Age: 7 Decade
  Sex: Male

DRUGS (2)
  1. CERCINE [Suspect]
     Active Substance: DIAZEPAM
     Indication: Status epilepticus
     Dosage: 3 OR 4 TIMES A DAY
     Route: 030
     Dates: start: 202402
  2. CERCINE [Suspect]
     Active Substance: DIAZEPAM
     Indication: Product used for unknown indication
     Dosage: DOSAGE IS UNKNOWN
     Route: 048
     Dates: end: 202402

REACTIONS (4)
  - Seizure [Unknown]
  - Induration [Unknown]
  - Liver disorder [Unknown]
  - Gastrointestinal haemorrhage [Unknown]

NARRATIVE: CASE EVENT DATE: 20240201
